FAERS Safety Report 19810276 (Version 1)
Quarter: 2021Q3

REPORT INFORMATION
  Report Type: Spontaneous
  Country: US (occurrence: US)
  Receive Date: 20210909
  Receipt Date: 20210909
  Transmission Date: 20211014
  Serious: Yes (Death)
  Sender: FDA-Public Use
  Company Number: None

PATIENT
  Age: 38 Year
  Sex: Female

DRUGS (1)
  1. GRANIX [Suspect]
     Active Substance: TBO-FILGRASTIM
     Indication: ACUTE MYELOID LEUKAEMIA
     Route: 058
     Dates: start: 20210804, end: 20210807

REACTIONS (1)
  - Death [None]

NARRATIVE: CASE EVENT DATE: 20210807
